FAERS Safety Report 25084859 (Version 2)
Quarter: 2025Q1

REPORT INFORMATION
  Report Type: Spontaneous
  Country: AU (occurrence: AU)
  Receive Date: 20250317
  Receipt Date: 20250325
  Transmission Date: 20250408
  Serious: No
  Sender: BRAEBURN PHARMACEUTICALS
  Company Number: AU-BRAEBURN-AU-BRA-25-000224

PATIENT

DRUGS (2)
  1. BUPRENORPHINE [Suspect]
     Active Substance: BUPRENORPHINE
     Indication: Product used for unknown indication
     Dosage: 128 MILLIGRAM (EVERY 4 WEEKS)
     Route: 065
  2. CYMBALTA [Concomitant]
     Active Substance: DULOXETINE HYDROCHLORIDE
     Indication: Product used for unknown indication
     Dosage: UNK, QD (MORNING)
     Route: 065

REACTIONS (4)
  - Somnolence [Recovered/Resolved]
  - Slow response to stimuli [Recovered/Resolved]
  - Dysarthria [Recovered/Resolved]
  - Sensory disturbance [Recovered/Resolved]

NARRATIVE: CASE EVENT DATE: 20250301
